FAERS Safety Report 7637375-6 (Version None)
Quarter: 2011Q3

REPORT INFORMATION
  Report Type: 
  Country: None (occurrence: None)
  Receive Date: 20110726
  Receipt Date: 20110720
  Transmission Date: 20111222
  Serious: Yes (Other)
  Sender: FDA-Public Use
  Company Number: US-PFIZER INC-2011117277

PATIENT
  Sex: Female

DRUGS (11)
  1. ATIVAN [Concomitant]
     Indication: DEPRESSION
     Dosage: UNK
     Dates: start: 19850101, end: 20100901
  2. ATIVAN [Concomitant]
     Indication: ANXIETY
  3. KLONOPIN [Concomitant]
     Indication: DEPRESSION
     Dosage: UNK
     Dates: start: 20060101
  4. ZOLOFT [Concomitant]
     Indication: DEPRESSION
     Dosage: 50 MG, UNK
     Dates: start: 20090301
  5. SYNTHROID [Concomitant]
     Indication: THYROID DISORDER
     Dosage: UNK
     Dates: start: 19800101
  6. ACTOS [Concomitant]
     Indication: DIABETES MELLITUS
     Dosage: UNK
     Dates: start: 20050101, end: 20090901
  7. KLONOPIN [Concomitant]
     Indication: ANXIETY
  8. ZOLOFT [Concomitant]
     Indication: ANXIETY
  9. CHANTIX [Suspect]
     Indication: SMOKING CESSATION THERAPY
     Dosage: 0.5 MG, UNK
     Dates: start: 20090528, end: 20090721
  10. SOMA [Concomitant]
     Indication: PAIN MANAGEMENT
     Dosage: UNK
     Dates: start: 20070101
  11. VITAMIN B-12 [Concomitant]
     Dosage: UNK
     Dates: start: 20080101

REACTIONS (6)
  - SUICIDAL IDEATION [None]
  - INSOMNIA [None]
  - DEPRESSION [None]
  - ANXIETY [None]
  - MOOD ALTERED [None]
  - MENTAL DISORDER [None]
